FAERS Safety Report 6260245-5 (Version None)
Quarter: 2009Q3

REPORT INFORMATION
  Report Type: 
  Country: None (occurrence: None)
  Receive Date: 20090708
  Receipt Date: 20090629
  Transmission Date: 20100115
  Serious: Yes (Life-Threatening)
  Sender: FDA-Public Use
  Company Number: US-WATSON-2009-05011

PATIENT
  Age: 45 Year
  Sex: Female

DRUGS (1)
  1. HALOPERIDOL LACTATE [Suspect]
     Indication: AGITATION
     Dosage: 5 MG, SINGLE, RAPID IV
     Route: 042

REACTIONS (1)
  - CARDIAC ARREST [None]
